FAERS Safety Report 25440876 (Version 1)
Quarter: 2025Q2

REPORT INFORMATION
  Report Type: Spontaneous
  Country: US (occurrence: None)
  Receive Date: 20250616
  Receipt Date: 20250616
  Transmission Date: 20250717
  Serious: Yes (Disabling, Other)
  Sender: FDA-CTU
  Company Number: None

PATIENT
  Age: 66 Year
  Sex: Female
  Weight: 97.65 kg

DRUGS (13)
  1. ZEPBOUND [Suspect]
     Active Substance: TIRZEPATIDE
     Indication: Obstructive sleep apnoea syndrome
     Route: 058
     Dates: start: 20250529, end: 20250616
  2. AMLODIPINE [Concomitant]
     Active Substance: AMLODIPINE BESYLATE
  3. ASPIRIN [Concomitant]
     Active Substance: ASPIRIN
  4. ATORVASTATIN [Concomitant]
     Active Substance: ATORVASTATIN
  5. BUPROPION [Concomitant]
     Active Substance: BUPROPION
  6. Calcium carbonate-cholecalciferol [Concomitant]
  7. CARVEDILOL [Concomitant]
     Active Substance: CARVEDILOL
  8. FLONASE [Concomitant]
     Active Substance: FLUTICASONE PROPIONATE
  9. IBUPROFEN [Concomitant]
     Active Substance: IBUPROFEN
  10. NICORETTE [Concomitant]
     Active Substance: NICOTINE
  11. OMEPRAZOLE [Concomitant]
     Active Substance: OMEPRAZOLE
  12. SUMATRIPTAN [Concomitant]
     Active Substance: SUMATRIPTAN
  13. VITAMIN K [Concomitant]
     Active Substance: PHYTONADIONE

REACTIONS (4)
  - Vision blurred [None]
  - Myopia [None]
  - Dizziness [None]
  - Impaired work ability [None]

NARRATIVE: CASE EVENT DATE: 20250616
